FAERS Safety Report 23653873 (Version 1)
Quarter: 2024Q1

REPORT INFORMATION
  Report Type: Spontaneous
  Country: US (occurrence: US)
  Receive Date: 20240320
  Receipt Date: 20240320
  Transmission Date: 20240409
  Serious: Yes (Hospitalization)
  Sender: FDA-Public Use
  Company Number: US-Stemline Therapeutics, Inc.-2024ST001786

PATIENT
  Age: 75 Year
  Sex: Female

DRUGS (1)
  1. ORSERDU [Suspect]
     Active Substance: ELACESTRANT
     Indication: Product used for unknown indication
     Route: 048
     Dates: start: 20231108

REACTIONS (8)
  - Dehydration [Unknown]
  - Nausea [Not Recovered/Not Resolved]
  - Vomiting [Not Recovered/Not Resolved]
  - Alopecia [Unknown]
  - Product taste abnormal [Unknown]
  - Gastrointestinal disorder [Unknown]
  - Dyspepsia [Unknown]
  - Constipation [Unknown]

NARRATIVE: CASE EVENT DATE: 20231201
